FAERS Safety Report 23626363 (Version 1)
Quarter: 2024Q1

REPORT INFORMATION
  Report Type: Spontaneous
  Country: US (occurrence: US)
  Receive Date: 20240313
  Receipt Date: 20240313
  Transmission Date: 20240409
  Serious: Yes (Hospitalization)
  Sender: FDA-Public Use
  Company Number: US-STRIDES ARCOLAB LIMITED-2024SP002868

PATIENT
  Age: 20 Year
  Sex: Male

DRUGS (5)
  1. LORATADINE [Suspect]
     Active Substance: LORATADINE
     Indication: Anaphylactic reaction
     Dosage: UNK
     Route: 065
  2. PREDNISOLONE [Suspect]
     Active Substance: PREDNISOLONE
     Indication: Anaphylactic reaction
     Dosage: UNK
     Route: 065
  3. EPINEPHRINE [Suspect]
     Active Substance: EPINEPHRINE
     Indication: Anaphylactic reaction
     Dosage: UNK (SELF ADMINISTERED; STARTED RECEIVING AT HOSPITAL; DOSE UNKNOWN)
     Route: 030
  4. EPINEPHRINE [Suspect]
     Active Substance: EPINEPHRINE
     Indication: Hypotension
     Dosage: UNK, (INFUSION)
     Route: 042
  5. EPINEPHRINE [Suspect]
     Active Substance: EPINEPHRINE
     Dosage: 0.15 ?G/KG/MIN (GRADUALLY INCREASED TO 0.15 ?G/KG/MIN) (INFUSION)
     Route: 042

REACTIONS (2)
  - Intentional product misuse [Unknown]
  - Off label use [Unknown]
